FAERS Safety Report 23745990 (Version 1)
Quarter: 2024Q2

REPORT INFORMATION
  Report Type: Spontaneous
  Country: US (occurrence: US)
  Receive Date: 20240416
  Receipt Date: 20240416
  Transmission Date: 20240715
  Serious: Yes (Life-Threatening, Hospitalization, Other)
  Sender: FDA-Public Use
  Company Number: US-HIKMA PHARMACEUTICALS USA INC.-US-H14001-24-02973

PATIENT
  Age: 8 Decade
  Sex: Male

DRUGS (4)
  1. AMIODARONE [Suspect]
     Active Substance: AMIODARONE
     Indication: Atrial fibrillation
     Dosage: UNKNOWN
     Route: 065
  2. WARFARIN [Suspect]
     Active Substance: WARFARIN
     Indication: Atrial fibrillation
     Dosage: 5 MILLIGRAM, QD
     Route: 065
  3. DIGOXIN [Concomitant]
     Active Substance: DIGOXIN
     Indication: Atrial fibrillation
     Dosage: UNKNOWN
     Route: 065
  4. DILTIAZEM [Concomitant]
     Active Substance: DILTIAZEM
     Indication: Atrial fibrillation
     Dosage: UNKNOWN
     Route: 065

REACTIONS (4)
  - Haematoma [Recovered/Resolved]
  - Drug interaction [Recovered/Resolved]
  - Coagulopathy [Recovered/Resolved]
  - Haemoglobin decreased [Recovering/Resolving]
